FAERS Safety Report 6369844-3 (Version None)
Quarter: 2009Q3

REPORT INFORMATION
  Report Type: 
  Country: None (occurrence: None)
  Receive Date: 20090923
  Receipt Date: 20070416
  Transmission Date: 20100115
  Serious: No
  Sender: FDA-Public Use
  Company Number: US-ASTRAZENECA-2006UW10982

PATIENT
  Age: 24 Year
  Sex: Female
  Weight: 72.6 kg

DRUGS (20)
  1. SEROQUEL [Suspect]
     Indication: MENTAL DISORDER
     Dosage: 100-300MG
     Route: 048
     Dates: start: 20021028
  2. SEROQUEL [Suspect]
     Indication: SCHIZOPHRENIA, PARANOID TYPE
     Dosage: 100-300MG
     Route: 048
     Dates: start: 20021028
  3. SEROQUEL [Suspect]
     Indication: DEPRESSION
     Dosage: 100-300MG
     Route: 048
     Dates: start: 20021028
  4. SEROQUEL [Suspect]
     Route: 048
     Dates: start: 20050101
  5. SEROQUEL [Suspect]
     Route: 048
     Dates: start: 20050101
  6. SEROQUEL [Suspect]
     Route: 048
     Dates: start: 20050101
  7. RISPERDAL [Concomitant]
  8. ZYPREXA/SYMBYAX [Concomitant]
  9. HUMALOG [Concomitant]
     Dosage: 100 U/L ONCE
     Route: 058
     Dates: start: 20020303
  10. ZOLOFT [Concomitant]
     Route: 048
     Dates: start: 20030210
  11. AVANDIA [Concomitant]
     Dosage: 2-8 MG
     Route: 048
     Dates: start: 20010301
  12. ZYPREXA [Concomitant]
     Dosage: 5-30 MG
     Route: 048
     Dates: start: 19990903
  13. BIAXIN [Concomitant]
     Route: 048
     Dates: start: 20030514
  14. GEODON [Concomitant]
     Route: 048
     Dates: start: 20040518
  15. DEPO-PROVERA [Concomitant]
     Route: 065
     Dates: start: 20030514
  16. NIFEDIPINE [Concomitant]
     Route: 048
     Dates: start: 20060507
  17. PRILOSEC [Concomitant]
     Route: 048
     Dates: start: 20001103
  18. ALBUTEROL [Concomitant]
     Route: 055
     Dates: start: 20040714
  19. GLUCOPHAGE [Concomitant]
     Route: 048
     Dates: start: 20050429
  20. PERCOCET [Concomitant]
     Dosage: 5/325 MG SIX TIMES
     Route: 048
     Dates: start: 20060505

REACTIONS (2)
  - DIABETES MELLITUS [None]
  - GESTATIONAL DIABETES [None]
